FAERS Safety Report 13841831 (Version 1)
Quarter: 2017Q3

REPORT INFORMATION
  Report Type: Report from Study
  Country: US (occurrence: US)
  Receive Date: 20170807
  Receipt Date: 20170807
  Transmission Date: 20171127
  Serious: No
  Sender: FDA-Public Use
  Company Number: US-AMGEN-USASL2017011005

PATIENT
  Age: 38 Year
  Sex: Female

DRUGS (1)
  1. NPLATE [Suspect]
     Active Substance: ROMIPLOSTIM
     Indication: IMMUNE THROMBOCYTOPENIC PURPURA
     Dosage: 1 - 2 MUG/KG, QWK
     Route: 058
     Dates: start: 20150924

REACTIONS (11)
  - Night sweats [Unknown]
  - Body temperature abnormal [Unknown]
  - Headache [Not Recovered/Not Resolved]
  - Stress [Unknown]
  - Photosensitivity reaction [Unknown]
  - Feeling abnormal [Unknown]
  - Alopecia [Not Recovered/Not Resolved]
  - Abdominal pain lower [Unknown]
  - Pain [Unknown]
  - Hyperacusis [Unknown]
  - Platelet count decreased [Unknown]
